FAERS Safety Report 7709756-3 (Version None)
Quarter: 2011Q3

REPORT INFORMATION
  Report Type: 
  Country: None (occurrence: None)
  Receive Date: 20110819
  Receipt Date: 20110805
  Transmission Date: 20111222
  Serious: Yes (Other)
  Sender: FDA-Public Use
  Company Number: 1000022865

PATIENT
  Age: 64 Year
  Sex: Female
  Weight: 86 kg

DRUGS (5)
  1. FYBOGEL (ISPAGHULA HUSK) (ISPAGHULA HUSK) [Concomitant]
  2. CORSODYL (CHLORHEXIDINE GLUCONATE, CHLORHEXIDINE DIGLUCONATE SOLUTION) [Concomitant]
  3. ESCITALOPRAM OXALATE [Suspect]
     Indication: ANXIETY
     Dosage: 5MG - 10MG (1 IN 1 D), ORAL
     Route: 048
     Dates: start: 20110621, end: 20110725
  4. ESCITALOPRAM OXALATE [Suspect]
     Indication: DEPRESSION
     Dosage: 5MG - 10MG (1 IN 1 D), ORAL
     Route: 048
     Dates: start: 20110621, end: 20110725
  5. IMIPRAMINE [Concomitant]

REACTIONS (1)
  - HAEMATURIA [None]
